FAERS Safety Report 10685882 (Version 2)
Quarter: 2015Q1

REPORT INFORMATION
  Report Type: Spontaneous
  Country: US (occurrence: US)
  Receive Date: 20141231
  Receipt Date: 20150107
  Transmission Date: 20150720
  Serious: Yes (Other)
  Sender: FDA-Public Use
  Company Number: US-PFIZER INC-2014358915

PATIENT
  Age: 100 Year
  Sex: Female
  Weight: 132.5 kg

DRUGS (2)
  1. HYZAAR [Concomitant]
     Active Substance: HYDROCHLOROTHIAZIDE\LOSARTAN POTASSIUM
     Indication: HYPERTENSION
     Dosage: UNK
  2. LATANOPROST. [Suspect]
     Active Substance: LATANOPROST
     Dosage: 1 GTT, 1X/DAY (ONE DROP IN EACH EYE AT NIGHT)
     Route: 047

REACTIONS (1)
  - Blindness [Recovered/Resolved]
